FAERS Safety Report 21608325 (Version 1)
Quarter: 2022Q4

REPORT INFORMATION
  Report Type: Spontaneous
  Country: IT (occurrence: IT)
  Receive Date: 20221117
  Receipt Date: 20221117
  Transmission Date: 20230112
  Serious: Yes (Hospitalization)
  Sender: FDA-Public Use
  Company Number: IT-MYLANLABS-2015M1002070

PATIENT
  Age: 48 Year
  Sex: Female

DRUGS (3)
  1. ALPRAZOLAM [Suspect]
     Active Substance: ALPRAZOLAM
     Indication: Anxiety
     Dosage: 2 MG, DAILY
     Route: 048
     Dates: start: 19960527, end: 20140527
  2. DIAZEPAM\ORYZANOL\THIAMINE HYDROCHLORIDE [Suspect]
     Active Substance: DIAZEPAM\ORYZANOL\THIAMINE HYDROCHLORIDE
     Indication: Anxiety
     Dosage: 10 ML, DAILY
     Route: 048
     Dates: start: 19960527, end: 20140527
  3. LORMETAZEPAM [Suspect]
     Active Substance: LORMETAZEPAM
     Indication: Anxiety
     Dosage: 10 ML, DAILY
     Route: 048
     Dates: start: 19960527, end: 20140527

REACTIONS (1)
  - Drug dependence [Recovering/Resolving]

NARRATIVE: CASE EVENT DATE: 20140527
